FAERS Safety Report 8549836-6 (Version None)
Quarter: 2012Q3

REPORT INFORMATION
  Report Type: 
  Country: None (occurrence: None)
  Receive Date: 20120730
  Receipt Date: 20120719
  Transmission Date: 20120928
  Serious: Yes (Other)
  Sender: FDA-Public Use
  Company Number: FR-ASTRAZENECA-2012SE49932

PATIENT
  Age: 14635 Day
  Sex: Male
  Weight: 57 kg

DRUGS (5)
  1. SEROQUEL [Suspect]
     Indication: AFFECTIVE DISORDER
     Route: 048
     Dates: start: 20120626, end: 20120628
  2. LOXAPINE HCL [Concomitant]
     Dates: end: 20120626
  3. NOZINAN [Concomitant]
     Indication: AGITATION
  4. SEROQUEL [Suspect]
     Route: 048
     Dates: start: 20120629, end: 20120629
  5. RISPERDAL [Concomitant]
     Dates: end: 20120629

REACTIONS (6)
  - INFLAMMATION [None]
  - FATIGUE [None]
  - HYPOTHERMIA [None]
  - DYSPHAGIA [None]
  - HYPOTONIA [None]
  - AGITATION [None]
